FAERS Safety Report 10077673 (Version 1)
Quarter: 2014Q2

REPORT INFORMATION
  Report Type: Spontaneous
  Country: GB (occurrence: GB)
  Receive Date: 20140414
  Receipt Date: 20140414
  Transmission Date: 20141212
  Serious: Yes (Death, Hospitalization)
  Sender: FDA-Public Use
  Company Number: GB-BAXTER-2014BAX017199

PATIENT
  Sex: Female

DRUGS (1)
  1. CYCLOPHOSPHAMIDE INJECTION 1G [Suspect]
     Indication: VASCULITIS
     Route: 042
     Dates: end: 20140326

REACTIONS (1)
  - Acute hepatic failure [Fatal]
